FAERS Safety Report 10725230 (Version 5)
Quarter: 2015Q2

REPORT INFORMATION
  Report Type: Spontaneous
  Country: AU (occurrence: AU)
  Receive Date: 20150120
  Receipt Date: 20150408
  Transmission Date: 20150821
  Serious: Yes (Other)
  Sender: FDA-Public Use
  Company Number: AU-ASTRAZENECA-2014SE57061

PATIENT
  Age: 24269 Day
  Sex: Male

DRUGS (1)
  1. ZOLADEX [Suspect]
     Active Substance: GOSERELIN ACETATE
     Route: 058
     Dates: start: 20140604

REACTIONS (19)
  - Agitation [Unknown]
  - Blood pressure fluctuation [Not Recovered/Not Resolved]
  - Feeling abnormal [Unknown]
  - Joint swelling [Not Recovered/Not Resolved]
  - Muscle spasms [Unknown]
  - Heart rate irregular [Not Recovered/Not Resolved]
  - Somnolence [Not Recovered/Not Resolved]
  - Night sweats [Not Recovered/Not Resolved]
  - Dyspnoea [Not Recovered/Not Resolved]
  - Anxiety [Unknown]
  - Diarrhoea [Unknown]
  - Sleep disorder due to general medical condition, insomnia type [Not Recovered/Not Resolved]
  - Nasal polyps [Unknown]
  - Hot flush [Not Recovered/Not Resolved]
  - Male sexual dysfunction [Unknown]
  - Sensory disturbance [Not Recovered/Not Resolved]
  - Constipation [Unknown]
  - Penis disorder [Not Recovered/Not Resolved]
  - Testicular atrophy [Not Recovered/Not Resolved]

NARRATIVE: CASE EVENT DATE: 20140716
